FAERS Safety Report 8616420-5 (Version None)
Quarter: 2012Q3

REPORT INFORMATION
  Report Type: 
  Country: None (occurrence: None)
  Receive Date: 20120823
  Receipt Date: 20120814
  Transmission Date: 20120928
  Serious: Yes (Other)
  Sender: FDA-Public Use
  Company Number: CHPA2012US018095

PATIENT
  Age: 59 Year
  Sex: Female

DRUGS (3)
  1. LISINOPRIL [Concomitant]
     Indication: HYPERTENSION
     Dosage: UNK, UNK
  2. BENEFIBER W/ WHEAT DEXTRIN [Suspect]
     Indication: IRRITABLE BOWEL SYNDROME
     Dosage: 2 TSP, QD IN THE MORNING
     Route: 048
     Dates: start: 20090101
  3. PROBIOTICS NOS [Concomitant]
     Dosage: UNK, BID

REACTIONS (4)
  - CONSTIPATION [None]
  - THERAPEUTIC RESPONSE UNEXPECTED [None]
  - BENIGN LYMPH NODE NEOPLASM [None]
  - OFF LABEL USE [None]
